FAERS Safety Report 13460179 (Version 2)
Quarter: 2017Q2

REPORT INFORMATION
  Report Type: Spontaneous
  Country: US (occurrence: US)
  Receive Date: 20170420
  Receipt Date: 20170508
  Transmission Date: 20170830
  Serious: Yes (Other)
  Sender: FDA-Public Use
  Company Number: US-TEVA-757701ACC

PATIENT
  Sex: Female
  Weight: 78.47 kg

DRUGS (19)
  1. SULFAMETHOXAZOLE W/TRIMETHOPRIM [Suspect]
     Active Substance: SULFAMETHOXAZOLE\TRIMETHOPRIM
     Indication: URINARY TRACT INFECTION
     Dosage: TOOK 800-160 MG 1 TABLET EVERY 12 HOURS AS NEEDED
     Route: 048
     Dates: start: 20170120, end: 201701
  2. TIZANIDINE HYDROCHLORIDE. [Concomitant]
     Active Substance: TIZANIDINE HYDROCHLORIDE
     Indication: MUSCLE RELAXANT THERAPY
     Dosage: 12 MILLIGRAM DAILY; TAKES ONE HALF OF A PILL AT BEDTIME BECAUSE IT MAKES HER SLEEPY
  3. CIPRO [Suspect]
     Active Substance: CIPROFLOXACIN HYDROCHLORIDE
     Indication: URINARY TRACT INFECTION
     Route: 065
  4. STOOL SOFTENER (DOCUSATE) [Concomitant]
     Active Substance: DOCUSATE
     Indication: RECTOCELE
     Dosage: TAKES 3 ONE TIME A DAY
  5. METOPROLOL TARTRATE. [Concomitant]
     Active Substance: METOPROLOL TARTRATE
     Indication: BLOOD PRESSURE MEASUREMENT
     Dosage: TAKES ONE HALF TABLET TWICE A DAY; SHE HAD BEEN ON THIS FOR ABOUT A YEAR
  6. BUTALBITAL, ACETAMINOPHEN, AND CAFFEINE [Concomitant]
     Active Substance: ACETAMINOPHEN\BUTALBITAL\CAFFEINE
     Indication: HEADACHE
     Dosage: 50-325-40 TB, CAN TAKE 1 TABLET EVERY 4 HOURS AS NEEDED
     Route: 048
  7. VITAMIN D3 [Concomitant]
     Active Substance: CHOLECALCIFEROL
     Indication: VITAMIN D DEFICIENCY
     Dosage: 1000 IU (INTERNATIONAL UNIT) DAILY;
  8. AMOXICILLIN. [Suspect]
     Active Substance: AMOXICILLIN
     Indication: URINARY TRACT INFECTION
     Route: 065
  9. POTASSIUM CHLORIDE. [Concomitant]
     Active Substance: POTASSIUM CHLORIDE
     Indication: BLOOD POTASSIUM INCREASED
     Dosage: 2 TABLETS DAILY WITH FOOD; SHE HAS BEEN ON IT FOR SEVERAL YEARS
     Route: 048
  10. ASPIRIN. [Concomitant]
     Active Substance: ASPIRIN
     Indication: ANTICOAGULANT THERAPY
     Dosage: 81 MILLIGRAM DAILY; SHE HAS BEEN ON THIS FOR ABOUT A YEAR
  11. FISH OIL [Concomitant]
     Active Substance: FISH OIL
     Indication: CARDIAC DISORDER
     Dosage: 1000 MG, 300 MG TAKES 3 A DAY
  12. TRIAMTERENE-HYDROCHLOROTHIAZID [Concomitant]
     Indication: FLUID OVERLOAD
     Dosage: 37.5-25 MG TAKES 1 TABLET A DAY; SHE HAS BEEN ON IT FOR SEVERAL YEARS
  13. TRAMADOL HYDROCHLORIDE. [Concomitant]
     Active Substance: TRAMADOL HYDROCHLORIDE
     Indication: PAIN
  14. CALCIUM 600+D3 [Concomitant]
     Active Substance: CALCIUM CARBONATE\VITAMIN D
     Indication: CALCIUM DEFICIENCY
     Dosage: TAKES 2 OF THEM ONCE A DAY
  15. PREDNISONE. [Concomitant]
     Active Substance: PREDNISONE
     Indication: ARTHRITIS
     Dosage: 1 TABLET ON MONDAYS AND FRIDAYS;  HAD BEEN ON THIS FOR MAY BE 2 YEARS
     Route: 048
  16. PANTOPRAZOLE [Suspect]
     Active Substance: PANTOPRAZOLE
     Indication: GASTROOESOPHAGEAL REFLUX DISEASE
     Dosage: 20 MILLIGRAM DAILY;
     Route: 048
     Dates: start: 20161220, end: 20170306
  17. CELECOXIB. [Concomitant]
     Active Substance: CELECOXIB
     Indication: OSTEOARTHRITIS
     Dosage: 200 MILLIGRAM DAILY; SHE HAS BEEN ON IT FOR ABOUT 4 YEARS
  18. PREDNISONE. [Concomitant]
     Active Substance: PREDNISONE
     Indication: MUSCLE DISORDER
  19. AMPICILLIN [Suspect]
     Active Substance: AMPICILLIN
     Indication: URINARY TRACT INFECTION
     Route: 065

REACTIONS (6)
  - Bladder irritation [Not Recovered/Not Resolved]
  - Haemorrhage urinary tract [Recovering/Resolving]
  - Urinary tract infection [Not Recovered/Not Resolved]
  - Drug ineffective [Unknown]
  - Eructation [Unknown]
  - Nausea [Unknown]

NARRATIVE: CASE EVENT DATE: 2017
